FAERS Safety Report 24565650 (Version 2)
Quarter: 2024Q4

REPORT INFORMATION
  Report Type: Report from Study
  Country: US (occurrence: US)
  Receive Date: 20241030
  Receipt Date: 20241105
  Transmission Date: 20250114
  Serious: Yes (Hospitalization)
  Sender: NOVARTIS
  Company Number: US-002147023-NVSC2024US209699

PATIENT
  Age: 59 Year
  Sex: Male
  Weight: 99.8 kg

DRUGS (1)
  1. KESIMPTA [Suspect]
     Active Substance: OFATUMUMAB
     Indication: Multiple sclerosis
     Dosage: 1 DOSAGE FORM, QMO
     Route: 058
     Dates: start: 20240118

REACTIONS (4)
  - Muscular weakness [Recovered/Resolved]
  - Fall [Recovered/Resolved]
  - Spinal stenosis [Unknown]
  - Asthenia [Unknown]

NARRATIVE: CASE EVENT DATE: 20240704
